FAERS Safety Report 5097586-3 (Version None)
Quarter: 2006Q3

REPORT INFORMATION
  Report Type: 
  Country: None (occurrence: None)
  Receive Date: 20060901
  Receipt Date: 20060828
  Transmission Date: 20061208
  Serious: Yes (Hospitalization)
  Sender: FDA-Public Use
  Company Number: THQ2006A00771

PATIENT
  Age: 63 Year
  Sex: Male

DRUGS (3)
  1. PIOGLITAZONE HCL [Suspect]
     Indication: DIABETES MELLITUS NON-INSULIN-DEPENDENT
     Dosage: 15 MG PER ORAL
     Route: 048
  2. AMARYL [Concomitant]
  3. METFORMIN HCL [Concomitant]

REACTIONS (2)
  - GANGRENE [None]
  - OEDEMA PERIPHERAL [None]
